FAERS Safety Report 13286730 (Version 1)
Quarter: 2017Q1

REPORT INFORMATION
  Report Type: Report from Study
  Country: None (occurrence: US)
  Receive Date: 20170301
  Receipt Date: 20170301
  Transmission Date: 20170428
  Serious: Yes (Other)
  Sender: FDA-Public Use
  Company Number: US-ABBVIE-17K-163-1886942-00

PATIENT
  Age: 30 Year
  Sex: Female
  Weight: 73.09 kg

DRUGS (3)
  1. HUMIRA [Suspect]
     Active Substance: ADALIMUMAB
     Indication: CROHN^S DISEASE
     Route: 058
     Dates: start: 201602
  2. LEXAPRO [Concomitant]
     Active Substance: ESCITALOPRAM OXALATE
     Indication: ANXIETY
  3. PRAZOSIN [Concomitant]
     Active Substance: PRAZOSIN
     Indication: SLEEP TERROR

REACTIONS (4)
  - Anal fissure [Recovered/Resolved]
  - Haemorrhoids [Recovered/Resolved]
  - Proctalgia [Not Recovered/Not Resolved]
  - Acrochordon [Recovered/Resolved]

NARRATIVE: CASE EVENT DATE: 201701
